FAERS Safety Report 11873505 (Version 2)
Quarter: 2016Q1

REPORT INFORMATION
  Report Type: Spontaneous
  Country: FR (occurrence: FR)
  Receive Date: 20151228
  Receipt Date: 20160205
  Transmission Date: 20160526
  Serious: Yes (Hospitalization, Other)
  Sender: FDA-Public Use
  Company Number: FR-SA-2015SA212880

PATIENT
  Age: 43 Year
  Sex: Male

DRUGS (10)
  1. CYCLOSPORINE. [Interacting]
     Active Substance: CYCLOSPORINE
     Indication: IMMUNOSUPPRESSANT DRUG THERAPY
     Route: 065
  2. PREDNISOLONE. [Concomitant]
     Active Substance: PREDNISOLONE
  3. ISONIAZID. [Suspect]
     Active Substance: ISONIAZID
     Route: 065
  4. RIFAMPICIN [Interacting]
     Active Substance: RIFAMPIN
     Indication: MYCOBACTERIUM KANSASII INFECTION
     Route: 065
  5. CLARITHROMYCIN. [Suspect]
     Active Substance: CLARITHROMYCIN
     Route: 065
  6. MYCOPHENOLATE MOFETIL. [Suspect]
     Active Substance: MYCOPHENOLATE MOFETIL
     Indication: IMMUNOSUPPRESSANT DRUG THERAPY
     Route: 065
  7. MYCOPHENOLATE MOFETIL. [Suspect]
     Active Substance: MYCOPHENOLATE MOFETIL
     Indication: IMMUNOSUPPRESSANT DRUG THERAPY
     Route: 065
  8. MOXIFLOXACIN HYDROCHLORIDE. [Suspect]
     Active Substance: MOXIFLOXACIN HYDROCHLORIDE
     Indication: MYCOBACTERIUM KANSASII INFECTION
     Route: 065
  9. ETHAMBUTOL [Suspect]
     Active Substance: ETHAMBUTOL HYDROCHLORIDE
     Route: 065
  10. CYCLOSPORINE. [Interacting]
     Active Substance: CYCLOSPORINE
     Indication: IMMUNOSUPPRESSANT DRUG THERAPY
     Route: 065

REACTIONS (16)
  - Lymphoid tissue hyperplasia [Recovered/Resolved]
  - Weight decreased [Recovered/Resolved]
  - Pyrexia [Recovered/Resolved]
  - Purulent discharge [Recovered/Resolved]
  - Condition aggravated [Recovering/Resolving]
  - Lymphadenopathy [Recovered/Resolved]
  - Mycobacterium kansasii infection [Recovered/Resolved]
  - Monocytosis [Recovered/Resolved]
  - Immune reconstitution inflammatory syndrome [Recovered/Resolved]
  - Drug level decreased [Recovered/Resolved]
  - Pain in extremity [Recovered/Resolved]
  - Lymphadenopathy [Recovered/Resolved]
  - Drug interaction [Unknown]
  - Dysphagia [Recovered/Resolved]
  - Phlebitis [Recovered/Resolved]
  - Tendon disorder [Recovering/Resolving]

NARRATIVE: CASE EVENT DATE: 2008
